FAERS Safety Report 4515648-3 (Version None)
Quarter: 2004Q4

REPORT INFORMATION
  Report Type: 
  Country: None (occurrence: None)
  Receive Date: 20040930
  Receipt Date: 20040614
  Transmission Date: 20050328
  Serious: No
  Sender: FDA-Public Use
  Company Number: USA-2004-0015589

PATIENT
  Age: 59 Year
  Sex: Female

DRUGS (1)
  1. SPECTRACEF [Suspect]
     Indication: CELLULITIS

REACTIONS (2)
  - CELLULITIS [None]
  - CONDITION AGGRAVATED [None]
